FAERS Safety Report 7719207-0 (Version None)
Quarter: 2011Q3

REPORT INFORMATION
  Report Type: 
  Country: None (occurrence: None)
  Receive Date: 20110830
  Receipt Date: 20110822
  Transmission Date: 20111222
  Serious: Yes (Hospitalization)
  Sender: FDA-Public Use
  Company Number: US-SANOFI-AVENTIS-2011SA054561

PATIENT
  Age: 11 Year
  Sex: Female

DRUGS (5)
  1. APIDRA [Suspect]
     Dosage: DOSE:30 UNIT(S)
     Route: 058
  2. LANTUS [Suspect]
     Dosage: DOSE:30 UNIT(S)
     Route: 058
  3. NOVOLOG [Concomitant]
  4. SOLOSTAR [Suspect]
  5. SOLOSTAR [Suspect]

REACTIONS (2)
  - DIABETIC KETOACIDOSIS [None]
  - WRONG DRUG ADMINISTERED [None]
